FAERS Safety Report 7901235-3 (Version None)
Quarter: 2011Q4

REPORT INFORMATION
  Report Type: 
  Country: None (occurrence: None)
  Receive Date: 20111108
  Receipt Date: 20111028
  Transmission Date: 20120403
  Serious: Yes (Other)
  Sender: FDA-Public Use
  Company Number: PHEH2009US09109

PATIENT
  Sex: Female

DRUGS (20)
  1. NEXIUM [Concomitant]
  2. TETRACYCLINE HYDROCHLORIDE [Concomitant]
  3. ARANESP [Concomitant]
  4. DIATX [Concomitant]
  5. SODIUM BICARBONATE [Concomitant]
  6. COREG [Concomitant]
  7. PLAQUENIL [Concomitant]
  8. AMITRIPTYLINE HCL [Concomitant]
  9. ARICEPT [Concomitant]
  10. ZOMETA [Suspect]
     Indication: MULTIPLE MYELOMA
  11. GLUCOSAMINE [Concomitant]
  12. ZOLOFT [Concomitant]
  13. AREDIA [Suspect]
     Indication: MULTIPLE MYELOMA
  14. PERCOCET [Concomitant]
  15. COZAAR [Concomitant]
  16. ASCORBIC ACID [Concomitant]
  17. CLINDAMYCIN [Concomitant]
     Dosage: 2 DF, TID
  18. KEFLEX [Concomitant]
  19. PREDNISONE [Concomitant]
  20. HYDROCODONE BITARTRATE [Concomitant]

REACTIONS (39)
  - RENAL FAILURE [None]
  - PRIMARY SEQUESTRUM [None]
  - PROTEINURIA [None]
  - PAIN IN EXTREMITY [None]
  - GASTROOESOPHAGEAL REFLUX DISEASE [None]
  - HERPES ZOSTER [None]
  - SKIN ULCER [None]
  - NEUROPATHY PERIPHERAL [None]
  - OSTEONECROSIS OF JAW [None]
  - INFECTION [None]
  - GENERAL PHYSICAL HEALTH DETERIORATION [None]
  - FALL [None]
  - PARALYSIS [None]
  - PELVIC FRACTURE [None]
  - DYSPNOEA [None]
  - MOUTH ULCERATION [None]
  - ORAL PAIN [None]
  - PERICARDIAL EFFUSION [None]
  - RIGHT ATRIAL DILATATION [None]
  - PERONEAL NERVE PALSY [None]
  - MITRAL VALVE INCOMPETENCE [None]
  - HYPOAESTHESIA [None]
  - LIMB INJURY [None]
  - PAIN [None]
  - DEFORMITY [None]
  - ANXIETY [None]
  - EXPOSED BONE IN JAW [None]
  - DEPRESSION [None]
  - CARDIAC TAMPONADE [None]
  - HYPERTENSION [None]
  - CARDIAC FAILURE CONGESTIVE [None]
  - PNEUMONIA [None]
  - OSTEOMYELITIS [None]
  - PERICARDITIS [None]
  - TRICUSPID VALVE INCOMPETENCE [None]
  - CONGESTIVE CARDIOMYOPATHY [None]
  - OSTEONECROSIS [None]
  - ANAEMIA [None]
  - OSTEOARTHRITIS [None]
